FAERS Safety Report 5079065-2 (Version None)
Quarter: 2006Q3

REPORT INFORMATION
  Report Type: 
  Country: None (occurrence: None)
  Receive Date: 20060814
  Receipt Date: 20060802
  Transmission Date: 20061208
  Serious: Yes (Other)
  Sender: FDA-Public Use
  Company Number: 2006AP03610

PATIENT
  Age: 74 Year
  Sex: Male
  Weight: 55 kg

DRUGS (2)
  1. CARBOCAIN AMPOULE [Suspect]
     Indication: ANAESTHESIA
     Route: 065
     Dates: start: 20060728, end: 20060728
  2. ANAPEINE INJECTION [Suspect]
     Indication: ANAESTHESIA
     Route: 053
     Dates: start: 20060728, end: 20060728

REACTIONS (3)
  - BRADYCARDIA [None]
  - DEPRESSED LEVEL OF CONSCIOUSNESS [None]
  - POISONING [None]
